FAERS Safety Report 7248927-X (Version None)
Quarter: 2010Q4

REPORT INFORMATION
  Report Type: 
  Country: None (occurrence: None)
  Receive Date: 20101012
  Receipt Date: 20100928
  Transmission Date: 20110411
  Serious: Yes (Death, Life-Threatening, Other)
  Sender: FDA-Public Use
  Company Number: AECAN201000099

PATIENT
  Age: 79 Year
  Sex: Female
  Weight: 103 kg

DRUGS (14)
  1. GAMUNEX [Suspect]
     Indication: MUSCULAR WEAKNESS
     Dosage: 50 ML TOTAL, IV
     Route: 042
     Dates: start: 20091207, end: 20100201
  2. ACTONEL [Concomitant]
  3. NORVASC [Concomitant]
  4. ALTACE [Concomitant]
  5. HYDROCHLOROTHIAZIDE [Concomitant]
  6. SIMVASTATIN [Concomitant]
  7. ASPIRIN [Concomitant]
  8. CAL-D [Concomitant]
  9. SYNTHROID [Concomitant]
  10. PANTOLOC [Concomitant]
  11. INSULIN TORONTO [Concomitant]
  12. NPH INSULIN [Concomitant]
  13. HUMALOG [Concomitant]
  14. VENTOLIN [Concomitant]

REACTIONS (9)
  - ASPHYXIA [None]
  - CARDIO-RESPIRATORY ARREST [None]
  - CHEST PAIN [None]
  - DYSPNOEA [None]
  - MUSCULOSKELETAL CHEST PAIN [None]
  - NAUSEA [None]
  - RENAL IMPAIRMENT [None]
  - RESPIRATORY FAILURE [None]
  - TRANSFUSION REACTION [None]
